FAERS Safety Report 5312466-3 (Version None)
Quarter: 2007Q2

REPORT INFORMATION
  Report Type: 
  Country: None (occurrence: None)
  Receive Date: 20070430
  Receipt Date: 20061212
  Transmission Date: 20071010
  Serious: No
  Sender: FDA-Public Use
  Company Number: 2006UW27610

PATIENT
  Age: 99 Year
  Sex: Female
  Weight: 46.3 kg

DRUGS (4)
  1. NEXIUM [Suspect]
     Indication: DYSPEPSIA
     Route: 048
  2. FLOMAX [Concomitant]
  3. MIACALCIN [Concomitant]
  4. PROCARDIA [Concomitant]

REACTIONS (2)
  - GLAUCOMA [None]
  - VISUAL DISTURBANCE [None]
